FAERS Safety Report 9057562 (Version 1)
Quarter: 2013Q1

REPORT INFORMATION
  Report Type: Spontaneous
  Country: ES (occurrence: ES)
  Receive Date: 20130204
  Receipt Date: 20130204
  Transmission Date: 20140127
  Serious: Yes (Death, Life-Threatening, Hospitalization)
  Sender: FDA-Public Use
  Company Number: ES-PFIZER INC-2013042437

PATIENT
  Age: 80 Year
  Sex: Male

DRUGS (6)
  1. ALDACTONE [Suspect]
     Indication: CARDIAC FAILURE
     Dosage: 25 MG, 1X/DAY
     Route: 048
     Dates: end: 20100927
  2. ENALAPRIL [Interacting]
     Indication: HYPERTENSION
     Dosage: 20 MG, 1X/DAY
     Route: 048
     Dates: start: 2006, end: 20100927
  3. COROPRES [Interacting]
     Dosage: 6.25 MG, 1X/DAY
     Route: 048
     Dates: start: 200910, end: 20100924
  4. SEGURIL [Interacting]
     Indication: CARDIAC FAILURE
     Dosage: 20 MG, 1X/DAY
     Route: 048
     Dates: start: 200909, end: 20100927
  5. ACFOL [Concomitant]
     Dosage: 5 MG, 1X/DAY
     Route: 048
     Dates: end: 20100924
  6. TROMALYT [Concomitant]
     Indication: PROPHYLAXIS
     Dosage: 150 MG, 1X/DAY
     Route: 048
     Dates: start: 201005, end: 20100924

REACTIONS (4)
  - Renal failure acute [Recovered/Resolved]
  - Hyperkalaemia [Recovered/Resolved]
  - Drug interaction [Recovered/Resolved]
  - Cardiac failure congestive [Fatal]
